FAERS Safety Report 5916158-9 (Version None)
Quarter: 2008Q4

REPORT INFORMATION
  Report Type: 
  Country: None (occurrence: None)
  Receive Date: 20081013
  Receipt Date: 20081001
  Transmission Date: 20090506
  Serious: Yes (Hospitalization)
  Sender: FDA-Public Use
  Company Number: FR-ASTRAZENECA-2007CG01164

PATIENT
  Age: 80 Year
  Sex: Female

DRUGS (6)
  1. CRESTOR [Suspect]
     Route: 048
  2. MOTILIUM [Suspect]
     Route: 048
  3. LEVOTHYROX [Suspect]
     Route: 048
  4. PANTOPRAZOLE SODIUM [Suspect]
     Route: 048
  5. TRANSIPEG [Suspect]
  6. FLEETPHOSPHOSODA [Suspect]

REACTIONS (1)
  - RENAL FAILURE ACUTE [None]
